FAERS Safety Report 19964117 (Version 1)
Quarter: 2021Q4

REPORT INFORMATION
  Report Type: Spontaneous
  Country: US (occurrence: US)
  Receive Date: 20211018
  Receipt Date: 20211018
  Transmission Date: 20220304
  Serious: Yes (Hospitalization)
  Sender: FDA-Public Use
  Company Number: None

PATIENT
  Sex: Male

DRUGS (1)
  1. HUMIRA [Suspect]
     Active Substance: ADALIMUMAB
     Indication: Crohn^s disease
     Dosage: ?          OTHER FREQUENCY:EVERY OTHER WEEK;
     Route: 058
     Dates: start: 20201202

REACTIONS (3)
  - Arthralgia [None]
  - Condition aggravated [None]
  - Mental disorder [None]
